FAERS Safety Report 8003520-6 (Version None)
Quarter: 2011Q4

REPORT INFORMATION
  Report Type: 
  Country: None (occurrence: None)
  Receive Date: 20111222
  Receipt Date: 20111216
  Transmission Date: 20120403
  Serious: Yes (Hospitalization)
  Sender: FDA-Public Use
  Company Number: US-PFIZER INC-2011307849

PATIENT
  Age: 61 Year
  Sex: Male

DRUGS (1)
  1. ARGATROBAN [Suspect]
     Indication: HEPARIN-INDUCED THROMBOCYTOPENIA
     Dosage: 8 MG/HR
     Route: 042
     Dates: start: 20111215

REACTIONS (1)
  - INTERNATIONAL NORMALISED RATIO INCREASED [None]
